FAERS Safety Report 9437115 (Version 1)
Quarter: 2013Q3

REPORT INFORMATION
  Report Type: Spontaneous
  Country: BR (occurrence: BR)
  Receive Date: 20130802
  Receipt Date: 20130802
  Transmission Date: 20140515
  Serious: Yes (Hospitalization)
  Sender: FDA-Public Use
  Company Number: BR-SANOFI-AVENTIS-2013SA075265

PATIENT
  Sex: Male
  Weight: 120 kg

DRUGS (8)
  1. LANTUS [Suspect]
     Indication: DIABETES MELLITUS
     Dosage: TAKEN FROM: 10 YEARS AGO
     Route: 058
     Dates: start: 2003
  2. AMLODIPINE [Concomitant]
     Route: 048
  3. LASIX [Concomitant]
  4. HUMALOG [Concomitant]
     Indication: DIABETES MELLITUS
  5. ROSUVASTATIN [Concomitant]
  6. AAS [Concomitant]
  7. GLIMEPIRIDE [Concomitant]
  8. LIPLESS [Concomitant]

REACTIONS (5)
  - Cerebrovascular accident [Not Recovered/Not Resolved]
  - Respiratory failure [Not Recovered/Not Resolved]
  - Cardiac failure [Not Recovered/Not Resolved]
  - Renal failure [Not Recovered/Not Resolved]
  - Local swelling [Not Recovered/Not Resolved]
